FAERS Safety Report 9416788 (Version 1)
Quarter: 2013Q3

REPORT INFORMATION
  Report Type: Spontaneous
  Country: US (occurrence: US)
  Receive Date: 20130724
  Receipt Date: 20130724
  Transmission Date: 20140515
  Serious: No
  Sender: FDA-Public Use
  Company Number: US-GALDERMA-US13000358

PATIENT
  Sex: Male

DRUGS (5)
  1. ORACEA (DOXYCYCLINE, USP) CAPSULES 40 MG [Suspect]
     Indication: ROSACEA
     Route: 048
     Dates: start: 2012
  2. DOXYCYCLINE [Suspect]
     Indication: PROSTATIC DISORDER
     Route: 048
  3. FINACEA [Concomitant]
     Indication: ROSACEA
     Route: 061
  4. CRESTOR [Concomitant]
     Indication: HYPERCHOLESTEROLAEMIA
     Route: 048
  5. PROMISEB [Concomitant]
     Route: 061

REACTIONS (1)
  - Oral candidiasis [Unknown]
